FAERS Safety Report 15637492 (Version 1)
Quarter: 2018Q4

REPORT INFORMATION
  Report Type: Spontaneous
  Country: US (occurrence: US)
  Receive Date: 20181120
  Receipt Date: 20181120
  Transmission Date: 20190205
  Serious: No
  Sender: FDA-Public Use
  Company Number: US-JNJFOC-20180538968

PATIENT
  Age: 78 Year
  Sex: Male
  Weight: 63 kg

DRUGS (6)
  1. IMBRUVICA [Concomitant]
     Active Substance: IBRUTINIB
     Indication: WHITE BLOOD CELL DISORDER
     Route: 048
     Dates: start: 20170301
  2. SIMVASTIN [Concomitant]
     Active Substance: SIMVASTATIN
  3. ALEVE [Concomitant]
     Active Substance: NAPROXEN SODIUM
  4. IMBRUVICA [Concomitant]
     Active Substance: IBRUTINIB
     Indication: WHITE BLOOD CELL DISORDER
     Route: 048
     Dates: start: 20160726
  5. AMLODIPINE [Concomitant]
     Active Substance: AMLODIPINE BESYLATE
  6. IMBRUVICA [Suspect]
     Active Substance: IBRUTINIB
     Indication: WHITE BLOOD CELL DISORDER
     Route: 048
     Dates: start: 20180426

REACTIONS (3)
  - Off label use [Unknown]
  - Product dose omission [Unknown]
  - Product use in unapproved indication [Unknown]

NARRATIVE: CASE EVENT DATE: 20180426
